FAERS Safety Report 5517405-8 (Version None)
Quarter: 2007Q4

REPORT INFORMATION
  Report Type: 
  Country: None (occurrence: None)
  Receive Date: 20071114
  Receipt Date: 20071031
  Transmission Date: 20080405
  Serious: Yes (Other)
  Sender: FDA-Public Use
  Company Number: US-RANBAXY-2007US-11180

PATIENT

DRUGS (1)
  1. ISOTRETINOIN [Suspect]
     Indication: DRUG USE FOR UNKNOWN INDICATION

REACTIONS (6)
  - BLEPHAROSPASM [None]
  - FACIAL PALSY [None]
  - MUSCLE TWITCHING [None]
  - SINUSITIS [None]
  - SOMNOLENCE [None]
  - TONGUE PARALYSIS [None]
